FAERS Safety Report 7915108-3 (Version None)
Quarter: 2011Q4

REPORT INFORMATION
  Report Type: 
  Country: None (occurrence: None)
  Receive Date: 20111115
  Receipt Date: 20111109
  Transmission Date: 20120403
  Serious: Yes (Death, Life-Threatening, Hospitalization)
  Sender: FDA-Public Use
  Company Number: US-GENZYME-FLUD-1001398

PATIENT
  Age: 61 Year
  Sex: Female

DRUGS (6)
  1. PERIFOSINE 207 [Suspect]
     Indication: NODAL MARGINAL ZONE B-CELL LYMPHOMA
     Dosage: UNK
     Route: 048
  2. CYCLOPHOSPHAMIDE [Suspect]
     Indication: NODAL MARGINAL ZONE B-CELL LYMPHOMA
     Dosage: 1 COURSE IN PREPARATION FOR STEM CELL TRANSPLANT
     Route: 065
  3. CYCLOPHOSPHAMIDE [Suspect]
     Indication: BONE MARROW CONDITIONING REGIMEN
  4. FLUDARA [Suspect]
     Indication: BONE MARROW CONDITIONING REGIMEN
     Dosage: 2 CYCLES (AFTER RELAPSE)
     Route: 065
  5. FLUDARA [Suspect]
     Indication: NODAL MARGINAL ZONE B-CELL LYMPHOMA
     Dosage: 2 CYCLES (INITIAL DIAGNOSIS)
     Route: 065
  6. FLUDARA [Suspect]
     Dosage: 1 COURSE IN PREPARATION FOR STEM CELL TRANSPLANT
     Route: 065

REACTIONS (11)
  - PANCYTOPENIA [None]
  - PLEURAL EFFUSION [None]
  - HYPERBILIRUBINAEMIA [None]
  - GRAFT VERSUS HOST DISEASE [None]
  - THROMBOCYTOPENIA [None]
  - BK VIRUS INFECTION [None]
  - MULTI-ORGAN FAILURE [None]
  - MYELODYSPLASTIC SYNDROME [None]
  - CYTOMEGALOVIRUS INFECTION [None]
  - PYREXIA [None]
  - CYSTITIS HAEMORRHAGIC [None]
